FAERS Safety Report 6495015-6 (Version None)
Quarter: 2009Q4

REPORT INFORMATION
  Report Type: 
  Country: None (occurrence: None)
  Receive Date: 20091214
  Receipt Date: 20090421
  Transmission Date: 20100525
  Serious: No
  Sender: FDA-Public Use
  Company Number: US-BRISTOL-MYERS SQUIBB COMPANY-14595557

PATIENT
  Age: 11 Year
  Sex: Male
  Weight: 74 kg

DRUGS (3)
  1. ABILIFY [Suspect]
     Indication: AFFECTIVE DISORDER
     Dosage: CURRENT DOSAGE: 5 MG IN THE MORNING AND 10 MG IN THE EVENING
  2. MELATONIN [Concomitant]
  3. MULTIVITAMIN WITH MINERALS [Concomitant]

REACTIONS (1)
  - BLOOD INSULIN INCREASED [None]
